FAERS Safety Report 4985844-X (Version None)
Quarter: 2006Q2

REPORT INFORMATION
  Report Type: 
  Country: None (occurrence: None)
  Receive Date: 20060428
  Receipt Date: 20050517
  Transmission Date: 20061013
  Serious: No
  Sender: FDA-Public Use
  Company Number: US-GLAXOSMITHKLINE-A0559387A

PATIENT
  Sex: Female

DRUGS (1)
  1. ZOFRAN [Suspect]
     Dosage: 8MG UNKNOWN
     Route: 048
     Dates: start: 20050508

REACTIONS (3)
  - DIZZINESS [None]
  - HEADACHE [None]
  - THERMAL BURN [None]
